FAERS Safety Report 20790886 (Version 1)
Quarter: 2022Q2

REPORT INFORMATION
  Report Type: Spontaneous
  Country: ES (occurrence: ES)
  Receive Date: 20220505
  Receipt Date: 20220505
  Transmission Date: 20220721
  Serious: Yes (Hospitalization)
  Sender: FDA-Public Use
  Company Number: None

PATIENT
  Age: 30 Year
  Sex: Male

DRUGS (3)
  1. AMOXICILLIN\CLAVULANIC ACID [Suspect]
     Active Substance: AMOXICILLIN\CLAVULANIC ACID
     Route: 065
     Dates: start: 20220331
  2. ACETAMINOPHEN [Suspect]
     Active Substance: ACETAMINOPHEN
     Indication: Viral infection
     Dosage: 1000MG, FREQUENCY TIME 8HRS, PARACETAMOL (12A)
     Route: 065
     Dates: start: 20220327
  3. IBUPROFEN [Suspect]
     Active Substance: IBUPROFEN
     Dosage: DURATION 5DAYS, IBUPROFEN (1769A)
     Route: 065
     Dates: start: 20220327, end: 20220331

REACTIONS (3)
  - Acute hepatic failure [Unknown]
  - Toxic epidermal necrolysis [Unknown]
  - Hyperamylasaemia [Unknown]

NARRATIVE: CASE EVENT DATE: 20220331
